FAERS Safety Report 8181823-2 (Version None)
Quarter: 2012Q1

REPORT INFORMATION
  Report Type: 
  Country: None (occurrence: None)
  Receive Date: 20120302
  Receipt Date: 20120223
  Transmission Date: 20120608
  Serious: Yes (Other)
  Sender: FDA-Public Use
  Company Number: CA-B.I. PHARMACEUTICALS,INC./RIDGEFIELD-2012-CN-00437CN

PATIENT
  Age: 67 Year
  Sex: Female

DRUGS (13)
  1. NORVASC [Concomitant]
     Dosage: 2.5 MG
  2. NOVOMIX INSULIN [Concomitant]
     Dosage: 40 U
  3. ASPIRIN [Concomitant]
     Dosage: 81 MG
  4. BISOPROLOL FUMARATE [Concomitant]
     Dosage: 2.5 MG
  5. CRESTOR [Concomitant]
     Dosage: 40 MG
  6. ZANTAC [Concomitant]
     Dosage: 300 MG
  7. TRAJENTA [Suspect]
     Indication: DIABETES MELLITUS
     Dosage: 5 MG
     Dates: start: 20111219, end: 20120101
  8. METFORMIN HCL [Concomitant]
     Dosage: 1000 MG
     Dates: end: 20120101
  9. ALTACE [Concomitant]
     Dosage: 5 MG
  10. SPIRIVA [Concomitant]
  11. ADVAIR DISKUS 100/50 [Concomitant]
  12. PLAVIX [Concomitant]
     Dosage: 75 MG
  13. CITALOPRAM HYDROBROMIDE [Concomitant]
     Dosage: 10 MG

REACTIONS (1)
  - BLOOD GLUCOSE DECREASED [None]
